FAERS Safety Report 23732008 (Version 5)
Quarter: 2024Q3

REPORT INFORMATION
  Report Type: Spontaneous
  Country: GB (occurrence: GB)
  Receive Date: 20240411
  Receipt Date: 20240722
  Transmission Date: 20241017
  Serious: Yes (Other)
  Sender: PFIZER
  Company Number: GB-MLMSERVICE-20240402-PI004734-00190-1

PATIENT
  Sex: Male

DRUGS (18)
  1. LEVETIRACETAM [Suspect]
     Active Substance: LEVETIRACETAM
     Indication: Epilepsy
     Dosage: 1000 MG, 1X/DAY
  2. LEVETIRACETAM [Suspect]
     Active Substance: LEVETIRACETAM
     Dosage: 500 MG, 1X/DAY (REDUCED, DAY 0 FROM PRESENTATION)
  3. LEVETIRACETAM [Suspect]
     Active Substance: LEVETIRACETAM
     Dosage: 375 MG, 1X/DAY (DAY 1 FROM PRESENTATION)
  4. LEVETIRACETAM [Suspect]
     Active Substance: LEVETIRACETAM
     Dosage: 500 MG, 1X/DAY (BETWEEN DAY 2 AND 3)
  5. LEVETIRACETAM [Suspect]
     Active Substance: LEVETIRACETAM
     Dosage: 250 MG, 1X/DAY (BETWEEN DAY 5 AND 6)
  6. LEVETIRACETAM [Suspect]
     Active Substance: LEVETIRACETAM
     Dosage: 1000 MG, 1X/DAY (BETWEEN DAY 13 AND 14)
  7. LEVETIRACETAM [Suspect]
     Active Substance: LEVETIRACETAM
     Dosage: 250 MG, 1X/DAY (BETWEEN DAY 14 AND 15)
  8. LEVETIRACETAM [Suspect]
     Active Substance: LEVETIRACETAM
     Dosage: 125 MG, 1X/DAY (BETWEEN DAY 16 AND 17)
  9. LEVETIRACETAM [Suspect]
     Active Substance: LEVETIRACETAM
     Dosage: 1000 MG, 1X/DAY (BETWEEN DAY 18 AND 19)
  10. LAMOTRIGINE [Suspect]
     Active Substance: LAMOTRIGINE
     Indication: Epilepsy
     Dosage: 400 MG, 1X/DAY (5 YR 3 MONTHS)
  11. LAMOTRIGINE [Suspect]
     Active Substance: LAMOTRIGINE
     Dosage: 200 MG, 1X/DAY (DAY 0 FROM PRESENTATION)
  12. LAMOTRIGINE [Suspect]
     Active Substance: LAMOTRIGINE
     Dosage: 150 MG, 1X/DAY (DAY 1 FROM PRESENTATION)
  13. LAMOTRIGINE [Suspect]
     Active Substance: LAMOTRIGINE
     Dosage: 200 MG, 1X/DAY (BETWEEN DAY 2 AND 3)
  14. LAMOTRIGINE [Suspect]
     Active Substance: LAMOTRIGINE
     Dosage: 100 MG, 1X/DAY (BETWEEN DAY 5 AND 6)
  15. LAMOTRIGINE [Suspect]
     Active Substance: LAMOTRIGINE
     Dosage: 75 MG, 1X/DAY (BETWEEN DAY 13 AND 14)
  16. LAMOTRIGINE [Suspect]
     Active Substance: LAMOTRIGINE
     Dosage: 150 MG, 1X/DAY (BETWEEN DAY 14 AND 15)
  17. LAMOTRIGINE [Suspect]
     Active Substance: LAMOTRIGINE
     Dosage: 150 MG, 1X/DAY (BETWEEN DAY 16 AND 17)
  18. LAMOTRIGINE [Suspect]
     Active Substance: LAMOTRIGINE
     Dosage: 150 MG, 1X/DAY (BETWEEN DAY 17 AND 18)

REACTIONS (1)
  - Toxic optic neuropathy [Recovered/Resolved]
